FAERS Safety Report 13877883 (Version 2)
Quarter: 2017Q3

REPORT INFORMATION
  Report Type: Spontaneous
  Country: CH (occurrence: CH)
  Receive Date: 20170817
  Receipt Date: 20170818
  Transmission Date: 20171127
  Serious: Yes (Other)
  Sender: FDA-Public Use
  Company Number: PHHY2017CH119829

PATIENT
  Sex: Male

DRUGS (7)
  1. DIGOXIN. [Interacting]
     Active Substance: DIGOXIN
     Indication: PRODUCT USED FOR UNKNOWN INDICATION
     Dosage: 3 UG/KG, QD REFLECTING 50% OF USUAL MAINTENANCE DOSE
     Route: 065
  2. MILRINONE [Concomitant]
     Active Substance: MILRINONE
     Indication: SUPPORTIVE CARE
  3. TEICOPLANIN [Concomitant]
     Active Substance: TEICOPLANIN
     Indication: BACILLUS INFECTION
     Route: 065
  4. CARVEDILOL. [Suspect]
     Active Substance: CARVEDILOL
     Indication: PRODUCT USED FOR UNKNOWN INDICATION
     Dosage: UNK
     Route: 065
  5. GENTAMICIN. [Concomitant]
     Active Substance: GENTAMICIN
     Indication: BACILLUS INFECTION
     Route: 065
  6. FUROSEMID [Concomitant]
     Active Substance: FUROSEMIDE
     Indication: DIURETIC THERAPY
     Dosage: 1.6-2.5 MG/KG/DAY
     Route: 048
  7. SPIRONOLACTONE. [Concomitant]
     Active Substance: SPIRONOLACTONE
     Indication: DIURETIC THERAPY
     Dosage: 1.2 MG/KG, QD
     Route: 048

REACTIONS (4)
  - Drug interaction [Unknown]
  - Cardioactive drug level increased [Recovered/Resolved]
  - Arrhythmia [Recovered/Resolved]
  - Toxicity to various agents [Unknown]
